FAERS Safety Report 15738767 (Version 1)
Quarter: 2018Q4

REPORT INFORMATION
  Report Type: Report from Study
  Country: US (occurrence: US)
  Receive Date: 20181219
  Receipt Date: 20181219
  Transmission Date: 20190205
  Serious: Yes (Other)
  Sender: FDA-Public Use
  Company Number: US-CIPLA LTD.-2018US23656

PATIENT

DRUGS (1)
  1. AZACITIDINE. [Suspect]
     Active Substance: AZACITIDINE
     Indication: EPENDYMOMA
     Dosage: 10 MG, WEEKLY, 12 INFUSIONS, 12 CONSECUTIVE WEEKS

REACTIONS (1)
  - Malignant neoplasm progression [Unknown]
